FAERS Safety Report 6061920-8 (Version None)
Quarter: 2009Q1

REPORT INFORMATION
  Report Type: 
  Country: None (occurrence: None)
  Receive Date: 20090202
  Receipt Date: 20090127
  Transmission Date: 20090719
  Serious: Yes (Other)
  Sender: FDA-Public Use
  Company Number: PHEH2009US01057

PATIENT
  Sex: Female

DRUGS (13)
  1. TEKTURNA [Suspect]
     Dosage: 150 MG, UNK
     Route: 048
     Dates: start: 20090114
  2. ZOCOR [Concomitant]
  3. SIMVASTATIN [Concomitant]
  4. STARLIX [Concomitant]
  5. METFORMIN [Concomitant]
  6. DOPAMINE HCL [Concomitant]
  7. CENTRUM [Concomitant]
  8. SYNTHROID [Concomitant]
     Dosage: UNK
     Dates: start: 20090122
  9. NORVASC [Concomitant]
     Dosage: UNK
  10. NORVASC [Concomitant]
     Dosage: UNK
     Dates: start: 20090122
  11. ASPIRIN [Concomitant]
     Dosage: UNK
     Dates: start: 20090122
  12. QUINAPRIL [Concomitant]
  13. METANX [Concomitant]

REACTIONS (5)
  - ABDOMINAL PAIN UPPER [None]
  - ASTHENIA [None]
  - DIARRHOEA [None]
  - ERUCTATION [None]
  - HAEMATOCHEZIA [None]
